FAERS Safety Report 8596501-5 (Version None)
Quarter: 2012Q3

REPORT INFORMATION
  Report Type: 
  Country: None (occurrence: None)
  Receive Date: 20120815
  Receipt Date: 20120813
  Transmission Date: 20120928
  Serious: No
  Sender: FDA-Public Use
  Company Number: US-PFIZER INC-2012165449

PATIENT
  Age: 65 Year
  Sex: Female

DRUGS (2)
  1. ATORVASTATIN CALCIUM [Suspect]
     Dosage: UNK
  2. LIPITOR [Suspect]
     Indication: BLOOD CHOLESTEROL INCREASED
     Dosage: 10 MG, PER DAY (10MG/D)
     Route: 048

REACTIONS (6)
  - EYELID OEDEMA [None]
  - SWELLING [None]
  - TREMOR [None]
  - NERVOUSNESS [None]
  - LOCAL SWELLING [None]
  - SWELLING FACE [None]
